FAERS Safety Report 14319157 (Version 1)
Quarter: 2017Q4

REPORT INFORMATION
  Report Type: Spontaneous
  Country: ES (occurrence: ES)
  Receive Date: 20171222
  Receipt Date: 20171222
  Transmission Date: 20180321
  Serious: Yes (Other)
  Sender: FDA-Public Use
  Company Number: ES-TEVA-2017-ES-833931

PATIENT
  Sex: Female

DRUGS (2)
  1. AMOXICILLIN W/CLAVULANIC ACID [Suspect]
     Active Substance: AMOXICILLIN\CLAVULANIC ACID
     Route: 065
  2. DUAVIVE [Interacting]
     Active Substance: BAZEDOXIFENE ACETATE\ESTROGENS, CONJUGATED
     Route: 048

REACTIONS (2)
  - Vaginal haemorrhage [Unknown]
  - Drug interaction [Unknown]
